FAERS Safety Report 5294772-4 (Version None)
Quarter: 2007Q2

REPORT INFORMATION
  Report Type: 
  Country: None (occurrence: None)
  Receive Date: 20070409
  Receipt Date: 20070409
  Transmission Date: 20071010
  Serious: Yes (Other)
  Sender: FDA-Public Use
  Company Number: None

PATIENT
  Age: 73 Year
  Sex: Male
  Weight: 108.6 kg

DRUGS (1)
  1. ROSIGLITAZONE [Suspect]

REACTIONS (1)
  - CARDIAC FAILURE CONGESTIVE [None]
